FAERS Safety Report 6338407-8 (Version None)
Quarter: 2009Q3

REPORT INFORMATION
  Report Type: 
  Country: None (occurrence: None)
  Receive Date: 20090901
  Receipt Date: 20090817
  Transmission Date: 20100115
  Serious: Yes (Hospitalization)
  Sender: FDA-Public Use
  Company Number: 2009AL002568

PATIENT
  Age: 45 Year
  Sex: Male

DRUGS (60)
  1. DIGOXIN [Suspect]
     Dosage: 0.25MG, DAILY, PO
     Route: 048
     Dates: start: 20050905
  2. TOPROL-XL [Concomitant]
  3. ALTACE [Concomitant]
  4. LASIX [Concomitant]
  5. NORVASC [Concomitant]
  6. XANAX [Concomitant]
  7. TYLENOL (CAPLET) [Concomitant]
  8. PROAIR HFA [Concomitant]
  9. TRICOR [Concomitant]
  10. LISINOPRIL [Concomitant]
  11. NIASPAN [Concomitant]
  12. LIPITOR [Concomitant]
  13. AMBIEN [Concomitant]
  14. DOXYCYCLINE HYCLATE [Concomitant]
  15. LEXAPRO [Concomitant]
  16. LORAZEPAM [Concomitant]
  17. LABETALOL HCL [Concomitant]
  18. HYDRALAZINE HCL [Concomitant]
  19. VIAGRA [Concomitant]
  20. ALBUTEROL [Concomitant]
  21. BUPROPION HCL [Concomitant]
  22. POTASSIUM CHLORIDE [Concomitant]
  23. ISOSORBIDE DINITRATE [Concomitant]
  24. PREDNISONE TAB [Concomitant]
  25. PROPOXYPHENE-N [Concomitant]
  26. ALPRAZOLAM [Concomitant]
  27. INDOMETHACIN [Concomitant]
  28. ATROVENT [Concomitant]
  29. ALTACE [Concomitant]
  30. DIOVAN [Concomitant]
  31. SPIRONOLACTONE [Concomitant]
  32. PENICILLIN [Concomitant]
  33. HYDROCODONE [Concomitant]
  34. IBUPROFEN [Concomitant]
  35. HYDROMORPHONE [Concomitant]
  36. ACETAMINOPHEN [Concomitant]
  37. CLORAZEPATE DIPOTASSIUM [Concomitant]
  38. ERYCETTE [Concomitant]
  39. NEOMYCIN [Concomitant]
  40. CILOXAN [Concomitant]
  41. ERYTHROMYCIN [Concomitant]
  42. TETRACYCLINE [Concomitant]
  43. CHLORHEXIDINE GLUCONATE [Concomitant]
  44. CEPHALEXIN [Concomitant]
  45. LODINE [Concomitant]
  46. LAMISIL [Concomitant]
  47. CARISOPRODOL [Concomitant]
  48. REDUX [Concomitant]
  49. NIZORAL [Concomitant]
  50. VICODIN [Concomitant]
  51. CYCLOBENZAPRINE [Concomitant]
  52. SPIRIVA [Concomitant]
  53. LEVITRA [Concomitant]
  54. PROVENTIL-HFA [Concomitant]
  55. ZOLPIDEM [Concomitant]
  56. CIALIS [Concomitant]
  57. METOPROLOL TARTRATE [Concomitant]
  58. ZETIA [Concomitant]
  59. METFORMIN HCL [Concomitant]
  60. ADVAIR HFA [Concomitant]

REACTIONS (12)
  - CARDIAC FAILURE CONGESTIVE [None]
  - CHEST DISCOMFORT [None]
  - COUGH [None]
  - DYSPNOEA AT REST [None]
  - DYSPNOEA EXERTIONAL [None]
  - ECONOMIC PROBLEM [None]
  - HYPERTENSION [None]
  - ILL-DEFINED DISORDER [None]
  - INJURY [None]
  - OEDEMA PERIPHERAL [None]
  - SURGERY [None]
  - WHEEZING [None]
